FAERS Safety Report 9736266 (Version 2)
Quarter: 2013Q4

REPORT INFORMATION
  Report Type: Spontaneous
  Country: AU (occurrence: AU)
  Receive Date: 20131206
  Receipt Date: 20131206
  Transmission Date: 20140711
  Serious: Yes (Other)
  Sender: FDA-Public Use
  Company Number: AU-PFIZER INC-8-0000014662

PATIENT
  Age: 27 Year
  Sex: Female

DRUGS (3)
  1. MINOMYCIN [Suspect]
     Indication: ACNE
     Dosage: 100 MG, DAILY
     Route: 048
     Dates: start: 19890712, end: 19891212
  2. ERYTHROMYCIN [Suspect]
     Indication: ACNE
     Dosage: 750 MG, DAILY
     Route: 048
     Dates: start: 19891115, end: 19891212
  3. TRIPHASIL-21 [Suspect]
     Indication: CONTRACEPTION
     Dosage: 1 DF, DAILY
     Route: 048
     Dates: start: 19890712, end: 19891212

REACTIONS (4)
  - Benign intracranial hypertension [Recovered/Resolved]
  - Papilloedema [Recovered/Resolved]
  - Headache [Recovered/Resolved]
  - Vision blurred [Recovered/Resolved]
